FAERS Safety Report 6785158-1 (Version None)
Quarter: 2010Q2

REPORT INFORMATION
  Report Type: 
  Country: None (occurrence: None)
  Receive Date: 20100618
  Receipt Date: 20100526
  Transmission Date: 20101027
  Serious: Yes (Death)
  Sender: FDA-Public Use
  Company Number: ESP-LIT-2010001

PATIENT
  Age: 16 Year
  Sex: Male

DRUGS (3)
  1. CARBAGLU [Suspect]
     Indication: HYPERAMMONAEMIA
     Dosage: 1 500 MG EVERY DAY; ORAL
     Route: 048
  2. SODIUM BENZOATE [Concomitant]
  3. L-CARNITINE [Concomitant]

REACTIONS (7)
  - BRAIN DEATH [None]
  - BRAIN OEDEMA [None]
  - HEPATIC NECROSIS [None]
  - HYPERAMMONAEMIA [None]
  - HYPERBILIRUBINAEMIA [None]
  - METABOLIC DISORDER [None]
  - ORNITHINE TRANSCARBAMOYLASE DEFICIENCY [None]
